FAERS Safety Report 18216622 (Version 1)
Quarter: 2020Q3

REPORT INFORMATION
  Report Type: Other
  Country: US (occurrence: US)
  Receive Date: 20200901
  Receipt Date: 20200901
  Transmission Date: 20201103
  Serious: Yes (Other)
  Sender: FDA-Public Use
  Company Number: US-ROCHE-2669505

PATIENT
  Age: 6 Year
  Sex: Female

DRUGS (10)
  1. TOCILIZUMAB. [Suspect]
     Active Substance: TOCILIZUMAB
     Indication: STILL^S DISEASE
     Route: 042
  2. METHOTREXATE. [Concomitant]
     Active Substance: METHOTREXATE
  3. TACROLIMUS. [Concomitant]
     Active Substance: TACROLIMUS
  4. TOCILIZUMAB. [Suspect]
     Active Substance: TOCILIZUMAB
     Indication: STILL^S DISEASE
     Route: 058
  5. MYCOPHENOLATE [Concomitant]
     Active Substance: MYCOPHENOLIC ACID
  6. ANAKINRA [Concomitant]
     Active Substance: ANAKINRA
  7. CYCLOSPORINE. [Concomitant]
     Active Substance: CYCLOSPORINE
  8. ABATACEPT [Concomitant]
     Active Substance: ABATACEPT
  9. CANAKINUMAB. [Concomitant]
     Active Substance: CANAKINUMAB
  10. PREDNISOLONE. [Concomitant]
     Active Substance: PREDNISOLONE
     Dates: start: 201607

REACTIONS (3)
  - Drug ineffective [Unknown]
  - Tachycardia [Unknown]
  - Tachypnoea [Unknown]
